FAERS Safety Report 18979390 (Version 1)
Quarter: 2021Q1

REPORT INFORMATION
  Report Type: Other
  Country: ES (occurrence: ES)
  Receive Date: 20210308
  Receipt Date: 20210308
  Transmission Date: 20210420
  Serious: Yes (Other)
  Sender: FDA-Public Use
  Company Number: ES-ROCHE-2778821

PATIENT

DRUGS (4)
  1. TOCILIZUMAB. [Suspect]
     Active Substance: TOCILIZUMAB
     Indication: CYTOKINE RELEASE SYNDROME
     Route: 065
  2. TOCILIZUMAB. [Suspect]
     Active Substance: TOCILIZUMAB
     Indication: COVID-19
  3. ANAKINRA [Suspect]
     Active Substance: ANAKINRA
     Indication: COVID-19
  4. ANAKINRA [Suspect]
     Active Substance: ANAKINRA
     Indication: CYTOKINE RELEASE SYNDROME
     Dosage: 100 MG/12 HOURS ON DAY 0, THEN AT 100 MG/24 HOURS FROM DAY 1 TO DAY 5
     Route: 058

REACTIONS (10)
  - Alanine aminotransferase increased [Unknown]
  - Embolism [Unknown]
  - Pneumonia [Unknown]
  - Pneumonia klebsiella [Unknown]
  - Enterococcal bacteraemia [Unknown]
  - Bacterial infection [Unknown]
  - Aspartate aminotransferase increased [Unknown]
  - Off label use [Unknown]
  - Device related bacteraemia [Unknown]
  - Staphylococcal bacteraemia [Unknown]
